FAERS Safety Report 7631990-1 (Version None)
Quarter: 2011Q3

REPORT INFORMATION
  Report Type: 
  Country: None (occurrence: None)
  Receive Date: 20110725
  Receipt Date: 20110527
  Transmission Date: 20111222
  Serious: No
  Sender: FDA-Public Use
  Company Number: US-BRISTOL-MYERS SQUIBB COMPANY-15761026

PATIENT
  Age: 61 Year
  Sex: Female

DRUGS (1)
  1. WARFARIN SODIUM [Suspect]
     Indication: PULMONARY EMBOLISM
     Route: 048
     Dates: start: 20110411

REACTIONS (5)
  - ALOPECIA [None]
  - URTICARIA [None]
  - DIZZINESS [None]
  - EPISTAXIS [None]
  - HEADACHE [None]
